FAERS Safety Report 7375777-6 (Version None)
Quarter: 2011Q1

REPORT INFORMATION
  Report Type: 
  Country: None (occurrence: None)
  Receive Date: 20110315
  Receipt Date: 20110301
  Transmission Date: 20110831
  Serious: Yes (Hospitalization)
  Sender: FDA-Public Use
  Company Number: 2011SP009564

PATIENT
  Sex: Female

DRUGS (2)
  1. SINGULAIR [Concomitant]
  2. DULERA TABLET [Suspect]
     Indication: ASTHMA
     Dosage: ;QID;INH
     Route: 055

REACTIONS (3)
  - ASTHMA [None]
  - DRUG EXPOSURE DURING PREGNANCY [None]
  - PREGNANCY [None]
